FAERS Safety Report 16955022 (Version 2)
Quarter: 2019Q4

REPORT INFORMATION
  Report Type: Spontaneous
  Country: US (occurrence: US)
  Receive Date: 20191024
  Receipt Date: 20191119
  Transmission Date: 20200122
  Serious: Yes (Hospitalization)
  Sender: FDA-Public Use
  Company Number: US-BRISTOL-MYERS SQUIBB COMPANY-BMS-2019-099610

PATIENT
  Sex: Male

DRUGS (2)
  1. COUMADIN [Suspect]
     Active Substance: WARFARIN SODIUM
     Indication: ATRIAL FIBRILLATION
     Dosage: 5 MILLIGRAM
     Route: 048
     Dates: start: 20190710, end: 20191110
  2. COUMADIN [Suspect]
     Active Substance: WARFARIN SODIUM
     Indication: VENTRICULAR TACHYCARDIA
     Route: 065

REACTIONS (2)
  - Drug level below therapeutic [Unknown]
  - Drug ineffective [Unknown]
